FAERS Safety Report 5689270-X (Version None)
Quarter: 2008Q1

REPORT INFORMATION
  Report Type: 
  Country: None (occurrence: None)
  Receive Date: 20080331
  Receipt Date: 20080319
  Transmission Date: 20080703
  Serious: Yes (Hospitalization, Other)
  Sender: FDA-Public Use
  Company Number: US-ELI_LILLY_AND_COMPANY-US200802005890

PATIENT
  Sex: Female

DRUGS (7)
  1. FORTEO [Suspect]
     Indication: OSTEOPOROSIS
     Dosage: 20 UG, DAILY (1/D)
     Dates: start: 20070101
  2. AGGRENOX [Concomitant]
     Dosage: 20 MG, 2/D
  3. LORAZEPAM [Concomitant]
     Dosage: 0.5 MG, UNK
  4. OMEPRAZOLE [Concomitant]
     Dosage: 20 MG, UNK
  5. LISINOPRIL [Concomitant]
     Dosage: 20 MG, UNK
  6. SERTRALINE [Concomitant]
     Dosage: 25 MG, UNK
  7. SIMVASTATIN [Concomitant]
     Dosage: 20 MG, UNK

REACTIONS (3)
  - LACUNAR INFARCTION [None]
  - NASOPHARYNGITIS [None]
  - TRANSIENT ISCHAEMIC ATTACK [None]
